FAERS Safety Report 8519260-0 (Version None)
Quarter: 2012Q3

REPORT INFORMATION
  Report Type: 
  Country: None (occurrence: None)
  Receive Date: 20120718
  Receipt Date: 20120706
  Transmission Date: 20120928
  Serious: Yes (Hospitalization)
  Sender: FDA-Public Use
  Company Number: US-ROCHE-1082263

PATIENT
  Sex: Female

DRUGS (9)
  1. COMBIVENT [Concomitant]
  2. TOPAMAX [Concomitant]
  3. DULERA [Concomitant]
  4. HYDROCHLOROTHIAZIDE [Concomitant]
  5. SINGULAIR [Concomitant]
  6. XYZAL [Concomitant]
  7. OMALIZUMAB [Suspect]
     Route: 030
     Dates: start: 20110601
  8. LAMICTAL [Concomitant]
  9. OMALIZUMAB [Suspect]
     Indication: ASTHMA
     Route: 058
     Dates: start: 20080305, end: 20100101

REACTIONS (6)
  - FATIGUE [None]
  - HAEMORRHAGE [None]
  - ASTHMA [None]
  - VIRAL RASH [None]
  - MYALGIA [None]
  - ARTHRALGIA [None]
